FAERS Safety Report 19936727 (Version 1)
Quarter: 2021Q4

REPORT INFORMATION
  Report Type: Spontaneous
  Country: CN (occurrence: CN)
  Receive Date: 20211008
  Receipt Date: 20211008
  Transmission Date: 20220303
  Serious: Yes (Life-Threatening, Hospitalization)
  Sender: FDA-Public Use
  Company Number: CN-BAXTER-2021BAX031330

PATIENT
  Age: 46 Year
  Sex: Female
  Weight: 62.5 kg

DRUGS (7)
  1. CYCLOPHOSPHAMIDE [Suspect]
     Active Substance: CYCLOPHOSPHAMIDE
     Indication: Acute lymphocytic leukaemia
     Dosage: CYCLOPHOSPHAMIDE 0.98 G + 0.9% SODIUM CHLORIDE 500 ML
     Route: 041
     Dates: start: 20210902, end: 20210902
  2. SODIUM CHLORIDE [Suspect]
     Active Substance: SODIUM CHLORIDE
     Indication: Medication dilution
     Dosage: IDARUBICIN HYDROCHLORIDE 16.3 G + 0.9% SODIUM CHLORIDE 250 ML
     Route: 041
     Dates: start: 20210902, end: 20210902
  3. SODIUM CHLORIDE [Suspect]
     Active Substance: SODIUM CHLORIDE
     Dosage: CYCLOPHOSPHAMIDE 0.98 G + 0.9% SODIUM CHLORIDE 500 ML
     Route: 041
     Dates: start: 20210902, end: 20210902
  4. SODIUM CHLORIDE [Suspect]
     Active Substance: SODIUM CHLORIDE
     Dosage: VINCRISTINE SULFATE 2 MG + 0.9% SODIUM CHLORIDE 100 ML
     Route: 041
     Dates: start: 20210902, end: 20210902
  5. IDARUBICIN HYDROCHLORIDE [Suspect]
     Active Substance: IDARUBICIN HYDROCHLORIDE
     Indication: Acute lymphocytic leukaemia
     Dosage: IDARUBICIN HYDROCHLORIDE 16.3 G + 0.9% SODIUM CHLORIDE 250 ML
     Route: 041
     Dates: start: 20210902, end: 20210904
  6. PEGASPARGASE [Suspect]
     Active Substance: PEGASPARGASE
     Indication: Acute lymphocytic leukaemia
     Route: 030
     Dates: start: 20210906, end: 20210906
  7. VINCRISTINE SULFATE [Suspect]
     Active Substance: VINCRISTINE SULFATE
     Indication: Acute lymphocytic leukaemia
     Dosage: VINCRISTINE SULFATE 2 MG + 0.9% SODIUM CHLORIDE 100 ML
     Route: 041
     Dates: start: 20210902, end: 20210902

REACTIONS (1)
  - Myelosuppression [Unknown]

NARRATIVE: CASE EVENT DATE: 20210907
